FAERS Safety Report 22074585 (Version 1)
Quarter: 2023Q1

REPORT INFORMATION
  Report Type: Spontaneous
  Country: US (occurrence: US)
  Receive Date: 20230308
  Receipt Date: 20230308
  Transmission Date: 20230418
  Serious: No
  Sender: FDA-Public Use
  Company Number: US-PFIZER INC-PV202300041124

PATIENT
  Age: 53 Year
  Sex: Female

DRUGS (1)
  1. XELJANZ XR [Suspect]
     Active Substance: TOFACITINIB CITRATE
     Indication: Ankylosing spondylitis
     Dosage: 11 MG, 1X/DAY
     Route: 048

REACTIONS (11)
  - Insomnia [Unknown]
  - Increased tendency to bruise [Unknown]
  - Chest pain [Unknown]
  - Palpitations [Unknown]
  - Hypoaesthesia [Unknown]
  - Asthenia [Unknown]
  - Migraine [Unknown]
  - Intraocular pressure increased [Unknown]
  - Depression [Unknown]
  - Anxiety [Unknown]
  - Muscular weakness [Unknown]
